FAERS Safety Report 5594367-9 (Version None)
Quarter: 2007Q4

REPORT INFORMATION
  Report Type: 
  Country: None (occurrence: None)
  Receive Date: 20071218
  Receipt Date: 20070108
  Transmission Date: 20080405
  Serious: Yes (Hospitalization, Other)
  Sender: FDA-Public Use
  Company Number: 2007003346

PATIENT
  Age: 47 Year
  Sex: Female

DRUGS (4)
  1. BEXTRA [Suspect]
     Indication: ARTHRITIS
     Dosage: 20 MG (20 MG, 1 IN 1 D)
     Dates: start: 20020418, end: 20041218
  2. PREVACID [Concomitant]
  3. NORVASC [Concomitant]
  4. PRILOSEC [Concomitant]

REACTIONS (1)
  - MYOCARDIAL INFARCTION [None]
